FAERS Safety Report 6272644-6 (Version None)
Quarter: 2009Q3

REPORT INFORMATION
  Report Type: 
  Country: None (occurrence: None)
  Receive Date: 20090717
  Receipt Date: 20090713
  Transmission Date: 20100115
  Serious: Yes (Disabling)
  Sender: FDA-Public Use
  Company Number: GB-ABBOTT-09P-167-0585280-00

PATIENT
  Age: 60 Year
  Sex: Female
  Weight: 85.1 kg

DRUGS (7)
  1. HUMIRA [Suspect]
     Indication: RHEUMATOID ARTHRITIS
     Dates: start: 20080801, end: 20090101
  2. METHOTREXATE [Concomitant]
     Indication: RHEUMATOID ARTHRITIS
     Dates: start: 20070901
  3. PREMPAK-C [Concomitant]
     Indication: HORMONE REPLACEMENT THERAPY
  4. FELODIPINE [Concomitant]
     Indication: HYPERTENSION
     Dates: start: 20081201
  5. ETORICOXIB [Concomitant]
     Indication: PAIN
     Dates: start: 20080301
  6. FOLIC ACID [Concomitant]
     Indication: DRUG TOXICITY PROPHYLAXIS
     Dates: start: 20070901
  7. PREDNISOLONE [Concomitant]
     Indication: DRUG USE FOR UNKNOWN INDICATION
     Dosage: INTERMITTENT USE

REACTIONS (4)
  - CENTRAL NERVOUS SYSTEM LESION [None]
  - DIZZINESS [None]
  - PARAESTHESIA [None]
  - PARAESTHESIA ORAL [None]
